FAERS Safety Report 21393238 (Version 1)
Quarter: 2022Q3

REPORT INFORMATION
  Report Type: Spontaneous
  Country: US (occurrence: US)
  Receive Date: 20220929
  Receipt Date: 20220929
  Transmission Date: 20221027
  Serious: No
  Sender: FDA-Public Use
  Company Number: US-Blueprint Medicines Corporation-SP-US-2022-002917

PATIENT
  Sex: Male

DRUGS (1)
  1. AYVAKIT [Suspect]
     Active Substance: AVAPRITINIB
     Indication: Gastrointestinal stromal tumour
     Route: 048
     Dates: start: 202207

REACTIONS (6)
  - Hair colour changes [Unknown]
  - Oedema [Unknown]
  - Swelling of eyelid [Unknown]
  - Periorbital swelling [Unknown]
  - Lacrimation increased [Unknown]
  - Diarrhoea [Unknown]
